FAERS Safety Report 11943220 (Version 1)
Quarter: 2016Q1

REPORT INFORMATION
  Report Type: Spontaneous
  Country: US (occurrence: US)
  Receive Date: 20160125
  Receipt Date: 20160125
  Transmission Date: 20160526
  Serious: No
  Sender: FDA-Public Use
  Company Number: US-ZYDUS-009454

PATIENT
  Sex: Female

DRUGS (1)
  1. DULOXETINE/DULOXETINE HYDROCHLORIDE [Suspect]
     Active Substance: DULOXETINE HYDROCHLORIDE
     Indication: DEPRESSION

REACTIONS (6)
  - Feelings of worthlessness [Unknown]
  - Anxiety [Unknown]
  - Suicidal ideation [Unknown]
  - Emotional distress [Unknown]
  - Depressed mood [Unknown]
  - Tearfulness [Unknown]
